FAERS Safety Report 8963268 (Version 2)
Quarter: 2014Q2

REPORT INFORMATION
  Report Type: Report from Study
  Country: BE (occurrence: BE)
  Receive Date: 20121214
  Receipt Date: 20131018
  Transmission Date: 20141212
  Serious: Yes (Hospitalization, Other)
  Sender: FDA-Public Use
  Company Number: BE-PFIZER INC-2012310967

PATIENT
  Age: 63 Year
  Sex: Male
  Weight: 78 kg

DRUGS (58)
  1. METHYLPREDNISOLONE [Suspect]
     Indication: PROPHYLAXIS AGAINST TRANSPLANT REJECTION
     Dosage: 6 MG, 1X/DAY
     Route: 048
     Dates: start: 20040206
  2. METHYLPREDNISOLONE [Suspect]
     Dosage: 16 MG, 1X/DAY
     Route: 048
     Dates: start: 20040723
  3. METHYLPREDNISOLONE [Suspect]
     Dosage: 4 MG, 1X/DAY
     Route: 048
     Dates: start: 20040810
  4. SOLU-MEDROL [Suspect]
     Indication: PROPHYLAXIS AGAINST TRANSPLANT REJECTION
     Dosage: 500 MG, 1X/DAY
     Route: 042
     Dates: start: 20040203, end: 20040203
  5. SOLU-MEDROL [Suspect]
     Dosage: 40 MG, 2X/DAY
     Route: 042
     Dates: start: 20040204, end: 20040206
  6. SOLU-CORTEF [Suspect]
     Indication: PROPHYLAXIS AGAINST TRANSPLANT REJECTION
     Dosage: 100 MG, 2X/DAY
     Route: 042
     Dates: start: 20040104
  7. SOLU-CORTEF [Suspect]
     Dosage: 100 MG, 1X/DAY
     Route: 042
     Dates: start: 20040728, end: 20040731
  8. DACLIZUMAB [Suspect]
     Indication: PROPHYLAXIS AGAINST TRANSPLANT REJECTION
     Dosage: 175 MG, 1X/DAY
     Route: 042
     Dates: start: 20040203, end: 20040203
  9. DACLIZUMAB [Suspect]
     Dosage: 85 MG, CYCLIC
     Route: 042
     Dates: start: 20040216
  10. DACLIZUMAB [Suspect]
     Dosage: 83 MG
     Route: 042
     Dates: start: 20040329, end: 20040329
  11. CELLCEPT [Suspect]
     Indication: PROPHYLAXIS AGAINST TRANSPLANT REJECTION
     Dosage: 1000 MG, 1X/DAY
     Route: 048
     Dates: start: 20040203, end: 20040203
  12. CELLCEPT [Suspect]
     Dosage: 1000 MG, 2X/DAY
     Route: 048
     Dates: start: 20040204
  13. CELLCEPT [Suspect]
     Dosage: 500 MG, 2X/DAY
     Route: 048
     Dates: start: 20040723
  14. CELLCEPT [Suspect]
     Dosage: 1000 MG, 2X/DAY
     Route: 048
     Dates: start: 20040810
  15. CELLCEPT [Suspect]
     Dosage: 500 MG, 2X/DAY
     Route: 048
     Dates: start: 20040917
  16. CELLCEPT [Suspect]
     Dosage: 1000 MG, 2X/DAY
     Route: 048
     Dates: start: 20041002
  17. CELLCEPT [Suspect]
     Dosage: 500 MG, 2X/DAY
     Route: 048
     Dates: start: 20041103
  18. CELLCEPT [Suspect]
     Dosage: 1000 MG, 2X/DAY
     Route: 048
     Dates: start: 20051228
  19. PROGRAFT [Suspect]
     Indication: PROPHYLAXIS AGAINST TRANSPLANT REJECTION
     Dosage: 2.5 MG, 2X/DAY
     Route: 048
     Dates: start: 20040203
  20. PROGRAFT [Suspect]
     Dosage: 1 MG, 2X/DAY
     Route: 048
     Dates: start: 20040907
  21. PROGRAFT [Suspect]
     Dosage: 2 MG, 2X/DAY
     Route: 048
     Dates: start: 20050628
  22. PROGRAFT [Suspect]
     Dosage: 2.5 MG, 2X/DAY
     Route: 048
     Dates: start: 20060914
  23. PROGRAFT [Suspect]
     Dosage: 3 MG, 2X/DAY
     Route: 048
     Dates: start: 20051121
  24. PROGRAFT [Suspect]
     Dosage: 2 MG, 2X/DAY
     Route: 048
     Dates: start: 20060327
  25. BACTRIM FORTE [Concomitant]
     Dosage: 400 MG, 1X/DAY
     Route: 048
     Dates: start: 20040204
  26. EMCONCOR [Concomitant]
     Dosage: 2.5 MG, 1X/DAY
     Route: 048
     Dates: start: 20040205
  27. EMCONCOR [Concomitant]
     Dosage: 10 MG, 1X/DAY
     Route: 048
     Dates: start: 20050628
  28. ASAFLOW [Concomitant]
     Dosage: 160 MG, 1X/DAY
     Route: 048
     Dates: start: 20040204, end: 20040722
  29. ASAFLOW [Concomitant]
     Dosage: 160 MG, 1X/DAY
     Route: 048
     Dates: start: 20040809, end: 20050613
  30. ZANTAC [Concomitant]
     Dosage: 150 MG
     Route: 048
  31. SODIUM BICARBONATE [Concomitant]
     Dosage: 1 DF, 1X/DAY
     Route: 048
  32. PECTOSAN SYRUP [Concomitant]
     Dosage: 30 ML, 4X/DAY
     Route: 048
  33. CORUNO [Concomitant]
     Dosage: 16 MG, 1X/DAY
     Route: 048
     Dates: start: 20040303
  34. LESCOL [Concomitant]
     Dosage: 80 MG, 1X/DAY
     Route: 048
     Dates: start: 20040225, end: 20041001
  35. 1 ALPHA-LEO [Concomitant]
     Dosage: 0.25 MG
     Route: 048
  36. CALCIUM CARBONATE [Concomitant]
     Dosage: 1 DF
     Route: 048
  37. LOSFERRON [Concomitant]
     Dosage: 1 DF, 2X/DAY
     Route: 048
  38. COZAAR [Concomitant]
     Dosage: 50 MG, 1X/DAY
     Route: 048
     Dates: start: 20040520
  39. MAGNESIUM [Concomitant]
     Dosage: UNK
     Route: 048
  40. AUGMENTIN [Concomitant]
     Dosage: 875 MG, 2X/DAY
     Route: 048
     Dates: start: 20040408, end: 20040418
  41. AUGMENTIN [Concomitant]
     Dosage: 500 MG, 3X/DAY
     Route: 048
     Dates: start: 20040603, end: 20040606
  42. DUOVENT [Concomitant]
     Dosage: 1 DF, 4X/DAY
     Route: 055
     Dates: start: 20040603, end: 20040621
  43. FLUTICASONE PROPIONATE [Concomitant]
     Dosage: 2 DF, 1X/DAY
     Dates: start: 20040603, end: 20040621
  44. AVELOX [Concomitant]
     Dosage: 400 MG, 1X/DAY
     Route: 048
     Dates: start: 20040723, end: 20040809
  45. AMLOR [Concomitant]
     Dosage: 5 MG, 1X/DAY
     Route: 048
     Dates: start: 20040312, end: 20040902
  46. ZOCOR [Concomitant]
     Dosage: 20 MG, 1X/DAY
     Route: 048
     Dates: start: 20041002
  47. AMOXICILIN [Concomitant]
     Dosage: 875 MG, 1X/DAY
     Route: 048
     Dates: start: 20040607, end: 20040608
  48. CLEXANE [Concomitant]
     Dosage: 40 MG, 1X/DAY
     Route: 058
     Dates: start: 20050104, end: 20050107
  49. CORVATARD [Concomitant]
     Dosage: 8 MG, 2X/DAY
     Route: 048
     Dates: start: 20040225, end: 20040301
  50. COVERSYL [Concomitant]
     Dosage: 2 MG, 1X/DAY
     Route: 048
     Dates: start: 20040225, end: 20040519
  51. GLAZIDIM [Concomitant]
     Dosage: 2000 MG, 1X/DAY
     Route: 042
     Dates: start: 20040203, end: 20040204
  52. GLURENORM [Concomitant]
     Dosage: 15 MG, 1X/DAY
     Route: 048
     Dates: start: 20040723, end: 20040916
  53. HYTRIN [Concomitant]
     Dosage: 2.5 MG, 1X/DAY
     Route: 048
     Dates: start: 20040902, end: 20040916
  54. INSULIN [Concomitant]
     Dosage: 2 IU, 1 HR
     Route: 042
     Dates: start: 20040203, end: 20040205
  55. TAVANIC [Concomitant]
     Dosage: 250 MG, 2X/DAY
     Route: 048
     Dates: start: 20040901, end: 20040912
  56. VANCOCIN [Concomitant]
     Dosage: 1000 MG, 1X/DAY
     Route: 042
     Dates: start: 20040203, end: 20040205
  57. ZOVIRAX [Concomitant]
     Dosage: 200 MG, 1X/DAY
     Route: 042
     Dates: start: 20040204
  58. ZOVIRAX [Concomitant]
     Dosage: 800 MG, 3X/DAY
     Route: 048
     Dates: start: 20040209, end: 20040318

REACTIONS (13)
  - Dysuria [Unknown]
  - Schwannoma [Recovered/Resolved]
  - Bronchitis [Recovered/Resolved]
  - Acute sinusitis [Recovered/Resolved]
  - Nocturia [Recovered/Resolved]
  - Angina unstable [Recovered/Resolved]
  - Transurethral prostatectomy [Recovered/Resolved]
  - Spinal meningioma benign [Recovered/Resolved]
  - Spinal cord compression [Recovered/Resolved]
  - Bradycardia [Recovered/Resolved]
  - Dyspnoea [Recovered/Resolved]
  - Chest pain [Recovered/Resolved]
  - Faecaloma [Recovered/Resolved]
